FAERS Safety Report 8071049 (Version 4)
Quarter: 2013Q1

REPORT INFORMATION
  Report Type: Spontaneous
  Country: US (occurrence: US)
  Receive Date: 20110805
  Receipt Date: 20130221
  Transmission Date: 20140127
  Serious: Yes (Hospitalization, Disabling, Other)
  Sender: FDA-Public Use
  Company Number: US-ELI_LILLY_AND_COMPANY-US201101002163

PATIENT
  Age: 89 Year
  Sex: Female

DRUGS (8)
  1. FORTEO [Suspect]
     Indication: OSTEOPOROSIS
     Dosage: 20 UG, DAILY (1/D)
     Route: 065
     Dates: start: 20101216
  2. FORTEO [Suspect]
     Dosage: 20 UG, DAILY (1/D)
     Route: 065
  3. FORTEO [Suspect]
     Dosage: UNK
     Dates: start: 20110101
  4. PREDNISONE [Concomitant]
  5. CARDIZEM                           /00489701/ [Concomitant]
  6. TOPROL [Concomitant]
  7. ASPIRIN [Concomitant]
  8. LIPITOR [Concomitant]

REACTIONS (16)
  - Arthropathy [Recovering/Resolving]
  - Gait disturbance [Recovering/Resolving]
  - Arthralgia [Unknown]
  - Volume blood decreased [Unknown]
  - Fall [Recovered/Resolved]
  - Concussion [Recovering/Resolving]
  - Laceration [Unknown]
  - Contusion [Unknown]
  - Head injury [Unknown]
  - Joint injury [Unknown]
  - Impaired healing [Unknown]
  - Muscular weakness [Recovering/Resolving]
  - Dizziness [Unknown]
  - Arthralgia [Unknown]
  - Drug dose omission [Recovered/Resolved]
  - Fall [Unknown]
